FAERS Safety Report 7069776-1 (Version None)
Quarter: 2010Q4

REPORT INFORMATION
  Report Type: 
  Country: None (occurrence: None)
  Receive Date: 20101028
  Receipt Date: 20100521
  Transmission Date: 20110411
  Serious: No
  Sender: FDA-Public Use
  Company Number: US-WYE-H15377110

PATIENT
  Sex: Male
  Weight: 99.88 kg

DRUGS (7)
  1. EFFEXOR [Suspect]
     Dosage: 56.25 MG IN THE MORNING AND 37.5 MG IN THE EVENING
     Dates: start: 19970701
  2. LEVOTHYROXINE [Concomitant]
  3. RANITIDINE [Concomitant]
  4. COZAAR [Concomitant]
  5. HYDROCHLOROTHIAZIDE [Concomitant]
  6. WELLBUTRIN [Concomitant]
  7. ADVAIR DISKUS 100/50 [Concomitant]

REACTIONS (1)
  - DRUG EFFECT DECREASED [None]
